FAERS Safety Report 11639945 (Version 3)
Quarter: 2016Q1

REPORT INFORMATION
  Report Type: Spontaneous
  Country: US (occurrence: US)
  Receive Date: 20151019
  Receipt Date: 20160211
  Transmission Date: 20160525
  Serious: Yes (Other)
  Sender: FDA-Public Use
  Company Number: US-BAYER-2015-442371

PATIENT
  Age: 33 Year
  Sex: Female
  Weight: 108.39 kg

DRUGS (2)
  1. MIRENA [Suspect]
     Active Substance: LEVONORGESTREL
     Indication: CONTRACEPTION
     Dosage: 20 MCG/24HR, CONT
     Route: 015
     Dates: start: 201510
  2. MIRENA [Suspect]
     Active Substance: LEVONORGESTREL
     Indication: CONTRACEPTION
     Dosage: 20 MCG/24HR, CONT
     Route: 015
     Dates: start: 2010, end: 20151002

REACTIONS (7)
  - Device difficult to use [None]
  - Post procedural discomfort [Not Recovered/Not Resolved]
  - Device breakage [Not Recovered/Not Resolved]
  - Complication of device removal [None]
  - Device use error [Not Recovered/Not Resolved]
  - Embedded device [Not Recovered/Not Resolved]
  - Off label use of device [Not Recovered/Not Resolved]

NARRATIVE: CASE EVENT DATE: 2015
